FAERS Safety Report 24303615 (Version 1)
Quarter: 2024Q3

REPORT INFORMATION
  Report Type: Spontaneous
  Country: EG (occurrence: EG)
  Receive Date: 20240910
  Receipt Date: 20240910
  Transmission Date: 20241016
  Serious: Yes (Death)
  Sender: PFIZER
  Company Number: EG-PFIZER INC-PV202400118582

PATIENT
  Age: 48 Year
  Sex: Male

DRUGS (1)
  1. SUTENT [Suspect]
     Active Substance: SUNITINIB MALATE
     Dosage: UNK, CYCLIC (DAILY FOR 2 WEEKS ON AND 1 WEEK OFF)
     Dates: start: 20231221

REACTIONS (1)
  - Death [Fatal]
